FAERS Safety Report 25187354 (Version 2)
Quarter: 2025Q4

REPORT INFORMATION
  Report Type: Spontaneous
  Country: US (occurrence: US)
  Receive Date: 20250411
  Receipt Date: 20251217
  Transmission Date: 20260118
  Serious: Yes (Other)
  Sender: COOPERSURGICAL
  Company Number: US-COOPERSURGICAL, INC.-2025CPS002657

PATIENT
  Age: 33 Year
  Sex: Female
  Weight: 68.027 kg

DRUGS (1)
  1. PARAGARD T 380A [Suspect]
     Active Substance: COPPER
     Indication: Contraception
     Dosage: UNK
     Route: 015
     Dates: start: 20110615

REACTIONS (12)
  - Device breakage [Recovered/Resolved]
  - Foreign body in urogenital tract [Recovered/Resolved]
  - Complication of device removal [Recovered/Resolved]
  - Embedded device [Recovered/Resolved]
  - Anxiety [Not Recovered/Not Resolved]
  - Emotional distress [Not Recovered/Not Resolved]
  - Procedural pain [Recovered/Resolved]
  - Pain [Recovered/Resolved]
  - Muscle spasms [Unknown]
  - Heavy menstrual bleeding [Recovered/Resolved]
  - Discomfort [Recovered/Resolved]
  - Vaginal infection [Unknown]

NARRATIVE: CASE EVENT DATE: 20110601
